FAERS Safety Report 7934039-6 (Version None)
Quarter: 2011Q4

REPORT INFORMATION
  Report Type: 
  Country: None (occurrence: None)
  Receive Date: 20111122
  Receipt Date: 20111116
  Transmission Date: 20120403
  Serious: Yes (Other)
  Sender: FDA-Public Use
  Company Number: US-MYLANLABS-2011S1021466

PATIENT
  Age: 19 Year
  Sex: Female

DRUGS (4)
  1. AMNESTEEM [Suspect]
     Dates: end: 20110929
  2. AMNESTEEM [Suspect]
     Dates: start: 20110426
  3. AMNESTEEM [Suspect]
  4. YAZ /06531601/ [Concomitant]

REACTIONS (2)
  - ABORTION INDUCED [None]
  - MATERNAL EXPOSURE DURING PREGNANCY [None]
